FAERS Safety Report 10050262 (Version 2)
Quarter: 2014Q2

REPORT INFORMATION
  Report Type: Spontaneous
  Country: CZ (occurrence: CZ)
  Receive Date: 20140401
  Receipt Date: 20140401
  Transmission Date: 20141212
  Serious: Yes (Other)
  Sender: FDA-Public Use
  Company Number: PHHY2014CZ033111

PATIENT
  Age: 62 Year
  Sex: Female
  Weight: 63 kg

DRUGS (2)
  1. DEGAN [Suspect]
     Indication: POSTOPERATIVE ILEUS
     Route: 051
     Dates: start: 20140228, end: 20140301
  2. SMOFKABIVEN [Suspect]
     Indication: NUTRITIONAL SUPPLEMENTATION
     Route: 041
     Dates: start: 20140228, end: 20140301

REACTIONS (5)
  - Blister [Recovered/Resolved]
  - Rash vesicular [Recovered/Resolved]
  - Rash [Recovered/Resolved]
  - Hypersensitivity [Recovered/Resolved]
  - Product quality issue [Unknown]
